FAERS Safety Report 6863300-1 (Version None)
Quarter: 2010Q3

REPORT INFORMATION
  Report Type: 
  Country: None (occurrence: None)
  Receive Date: 20100721
  Receipt Date: 20100708
  Transmission Date: 20110219
  Serious: Yes (Hospitalization)
  Sender: FDA-Public Use
  Company Number: PHHO2010US01641

PATIENT
  Sex: Male
  Weight: 123.8 kg

DRUGS (5)
  1. TASIGNA [Suspect]
     Indication: CHRONIC MYELOID LEUKAEMIA
     Dosage: 400MG/DAY
     Route: 048
     Dates: start: 20051228, end: 20100114
  2. TASIGNA [Suspect]
     Dosage: NO TREATMENT
     Dates: start: 20100115, end: 20100121
  3. TASIGNA [Suspect]
     Dosage: 400MG/DAY
     Route: 048
     Dates: start: 20100122
  4. MULTI-VIT [Concomitant]
  5. VITAMIN C [Concomitant]

REACTIONS (8)
  - CARDIAC ARREST [None]
  - CARDIOVERSION [None]
  - CORONARY ARTERY BYPASS [None]
  - CORONARY ARTERY STENOSIS [None]
  - ENDOTRACHEAL INTUBATION [None]
  - MYOCARDIAL INFARCTION [None]
  - SYNCOPE [None]
  - VENTRICULAR FIBRILLATION [None]
